FAERS Safety Report 7897934-2 (Version None)
Quarter: 2011Q4

REPORT INFORMATION
  Report Type: 
  Country: None (occurrence: None)
  Receive Date: 20111107
  Receipt Date: 20111101
  Transmission Date: 20120403
  Serious: Yes (Other)
  Sender: FDA-Public Use
  Company Number: AU-ABBOTT-11P-008-0870975-00

PATIENT
  Age: 45 Year
  Sex: Female

DRUGS (2)
  1. UNKNOWN STATIN [Concomitant]
     Indication: PRODUCT USED FOR UNKNOWN INDICATION
  2. LIPIDIL [Suspect]
     Indication: PRODUCT USED FOR UNKNOWN INDICATION

REACTIONS (1)
  - RENAL IMPAIRMENT [None]
